FAERS Safety Report 4939110-9 (Version None)
Quarter: 2006Q1

REPORT INFORMATION
  Report Type: 
  Country: None (occurrence: None)
  Receive Date: 20060306
  Receipt Date: 20060221
  Transmission Date: 20060701
  Serious: Yes (Other)
  Sender: FDA-Public Use
  Company Number: A-US2005-11385

PATIENT
  Age: 51 Year
  Sex: Male
  Weight: 110 kg

DRUGS (7)
  1. TRACLEER [Suspect]
     Indication: PULMONARY HYPERTENSION
     Dosage: 125 MG, BID; ORAL; 62.5 MG, BID; ORAL
     Route: 048
     Dates: start: 20051007, end: 20051128
  2. TRACLEER [Suspect]
     Indication: PULMONARY HYPERTENSION
     Dosage: 125 MG, BID; ORAL; 62.5 MG, BID; ORAL
     Route: 048
     Dates: start: 20051129, end: 20051227
  3. AMLODIPINE [Concomitant]
  4. WARFARIN [Concomitant]
  5. OLMESARTAN [Concomitant]
  6. SALBUTAMOL [Concomitant]
  7. FUROSEMIDE [Concomitant]

REACTIONS (4)
  - ALANINE AMINOTRANSFERASE INCREASED [None]
  - ASPARTATE AMINOTRANSFERASE INCREASED [None]
  - BLOOD ALKALINE PHOSPHATASE INCREASED [None]
  - LIVER FUNCTION TEST ABNORMAL [None]
